FAERS Safety Report 14111390 (Version 2)
Quarter: 2018Q2

REPORT INFORMATION
  Report Type: Spontaneous
  Country: ES (occurrence: ES)
  Receive Date: 20171020
  Receipt Date: 20180523
  Transmission Date: 20180711
  Serious: Yes (Hospitalization, Other)
  Sender: FDA-Public Use
  Company Number: ES-KINDOS PHARMACEUTICALS CO., LTD.-2017MHL00002

PATIENT
  Age: 66 Year
  Sex: Female

DRUGS (2)
  1. CARBOPLATIN. [Suspect]
     Active Substance: CARBOPLATIN
     Dosage: DENSITIZATION PROTOCOL: 0.01 MG UP TO A FINAL CUMULATIVE DOSE OF 149 MG, 13 STEPS
     Route: 065
  2. CARBOPLATIN. [Suspect]
     Active Substance: CARBOPLATIN
     Indication: OVARIAN CANCER
     Route: 065

REACTIONS (3)
  - Thrombocytopenia [Recovered/Resolved]
  - Haemolytic anaemia [Recovered/Resolved]
  - Anaphylactic reaction [Recovered/Resolved]
